FAERS Safety Report 7789283-8 (Version None)
Quarter: 2011Q3

REPORT INFORMATION
  Report Type: 
  Country: None (occurrence: None)
  Receive Date: 20110930
  Receipt Date: 20110928
  Transmission Date: 20111222
  Serious: Yes (Hospitalization)
  Sender: FDA-Public Use
  Company Number: US-GLAXOSMITHKLINE-A0840382A

PATIENT
  Age: 68 Year
  Sex: Male
  Weight: 102.7 kg

DRUGS (1)
  1. ROSIGLITAZONE MALEATE [Suspect]
     Indication: DIABETES MELLITUS
     Route: 048

REACTIONS (9)
  - CARDIAC FAILURE CONGESTIVE [None]
  - TRAUMATIC LUNG INJURY [None]
  - ACUTE RESPIRATORY DISTRESS SYNDROME [None]
  - PULMONARY EMBOLISM [None]
  - ATRIAL FIBRILLATION [None]
  - OXYGEN SUPPLEMENTATION [None]
  - LUNG DISORDER [None]
  - RESUSCITATION [None]
  - DIABETES MELLITUS [None]
